FAERS Safety Report 24217429 (Version 3)
Quarter: 2025Q2

REPORT INFORMATION
  Report Type: Spontaneous
  Country: GB (occurrence: GB)
  Receive Date: 20240816
  Receipt Date: 20250604
  Transmission Date: 20250717
  Serious: Yes (Death, Hospitalization, Other)
  Sender: CELLTRION
  Company Number: GB-CELLTRION INC.-2024GB019471

PATIENT

DRUGS (38)
  1. RITUXIMAB [Suspect]
     Active Substance: RITUXIMAB
     Indication: Diffuse large B-cell lymphoma stage IV
     Route: 042
     Dates: start: 20210721, end: 20210722
  2. RITUXIMAB [Suspect]
     Active Substance: RITUXIMAB
     Route: 042
     Dates: start: 20210811
  3. RITUXIMAB [Suspect]
     Active Substance: RITUXIMAB
     Route: 042
     Dates: start: 20210811, end: 20210811
  4. EPCORITAMAB [Suspect]
     Active Substance: EPCORITAMAB
     Indication: Diffuse large B-cell lymphoma stage IV
     Route: 058
     Dates: start: 20210722, end: 20210722
  5. CYCLOPHOSPHAMIDE [Suspect]
     Active Substance: CYCLOPHOSPHAMIDE
     Indication: Diffuse large B-cell lymphoma stage IV
     Route: 042
     Dates: start: 20210721, end: 20210721
  6. CYCLOPHOSPHAMIDE [Suspect]
     Active Substance: CYCLOPHOSPHAMIDE
     Indication: Diffuse large B-cell lymphoma stage IV
     Route: 042
     Dates: start: 20210811, end: 20210811
  7. CYCLOPHOSPHAMIDE [Suspect]
     Active Substance: CYCLOPHOSPHAMIDE
     Route: 042
     Dates: start: 20210721, end: 20210721
  8. DOXORUBICIN [Suspect]
     Active Substance: DOXORUBICIN
     Indication: Diffuse large B-cell lymphoma stage IV
     Route: 042
     Dates: start: 20210721, end: 20210811
  9. DOXORUBICIN [Suspect]
     Active Substance: DOXORUBICIN
     Route: 042
     Dates: start: 20210811, end: 20210811
  10. DOXORUBICIN [Suspect]
     Active Substance: DOXORUBICIN
     Route: 042
     Dates: start: 20210721, end: 20210721
  11. VINCRISTINE [Suspect]
     Active Substance: VINCRISTINE
     Indication: Diffuse large B-cell lymphoma stage IV
     Route: 042
     Dates: start: 20210721, end: 20210811
  12. VINCRISTINE [Suspect]
     Active Substance: VINCRISTINE
     Dosage: 1.4 MG/M2, EVERY 1 WEEK
     Route: 042
     Dates: start: 20210811, end: 20210811
  13. VINCRISTINE [Suspect]
     Active Substance: VINCRISTINE
     Dosage: 1.4 MG/M2, EVERY 1 WEEK
     Route: 042
     Dates: start: 20210721, end: 20210721
  14. PREDNISONE [Suspect]
     Active Substance: PREDNISONE
     Indication: Diffuse large B-cell lymphoma stage IV
     Route: 048
     Dates: start: 20210721
  15. PREDNISONE [Suspect]
     Active Substance: PREDNISONE
     Route: 048
     Dates: start: 20210811
  16. FILGRASTIM [Concomitant]
     Active Substance: FILGRASTIM
     Dates: start: 20210812, end: 20210818
  17. CHLORPHENIRAMINE MALEATE [Concomitant]
     Active Substance: CHLORPHENIRAMINE MALEATE
     Route: 042
     Dates: start: 20210722, end: 20210811
  18. ACETAMINOPHEN [Concomitant]
     Active Substance: ACETAMINOPHEN
     Route: 048
     Dates: start: 20210722, end: 20210811
  19. PREDNISOLONE [Concomitant]
     Active Substance: PREDNISOLONE
     Route: 048
     Dates: start: 20210811, end: 20210815
  20. PREDNISOLONE [Concomitant]
     Active Substance: PREDNISOLONE
     Dates: start: 20210721, end: 20210725
  21. ONDANSETRON [Concomitant]
     Active Substance: ONDANSETRON
     Dates: start: 20210721, end: 20210813
  22. ONDANSETRON [Concomitant]
     Active Substance: ONDANSETRON
  23. RASBURICASE [Concomitant]
     Active Substance: RASBURICASE
     Dates: start: 20210721, end: 20210721
  24. ACYCLOVIR [Concomitant]
     Active Substance: ACYCLOVIR
     Dates: start: 20210721
  25. ACYCLOVIR [Concomitant]
     Active Substance: ACYCLOVIR
     Dates: start: 20210723
  26. COTRIMOXAZOLE [Concomitant]
     Active Substance: SULFAMETHOXAZOLE\TRIMETHOPRIM
     Dates: start: 20210721
  27. COTRIMOXAZOLE [Concomitant]
     Active Substance: SULFAMETHOXAZOLE\TRIMETHOPRIM
     Dates: start: 20210723, end: 20210827
  28. CODEINE [Concomitant]
     Active Substance: CODEINE
     Dates: start: 20210721
  29. FLUCONAZOLE [Concomitant]
     Active Substance: FLUCONAZOLE
     Dates: start: 20210721
  30. FLUCONAZOLE [Concomitant]
     Active Substance: FLUCONAZOLE
     Dates: start: 20210723
  31. LANSOPRAZOLE [Concomitant]
     Active Substance: LANSOPRAZOLE
     Dates: start: 20210723
  32. LANSOPRAZOLE [Concomitant]
     Active Substance: LANSOPRAZOLE
     Dates: start: 202106
  33. METOCLOPRAMIDE [Concomitant]
     Active Substance: METOCLOPRAMIDE
     Dates: start: 20210721
  34. METOCLOPRAMIDE [Concomitant]
     Active Substance: METOCLOPRAMIDE
     Dates: start: 20210723
  35. DALTEPARIN [Concomitant]
     Active Substance: DALTEPARIN
     Dates: start: 20210721, end: 20210827
  36. DALTEPARIN [Concomitant]
     Active Substance: DALTEPARIN
     Dates: start: 20210824
  37. SENNAE [Concomitant]
     Dates: start: 20210818
  38. CYCLIZINE [Concomitant]
     Active Substance: CYCLIZINE
     Dates: start: 20210824, end: 202204

REACTIONS (2)
  - Death [Fatal]
  - Febrile neutropenia [Recovered/Resolved]

NARRATIVE: CASE EVENT DATE: 20210727
